FAERS Safety Report 23590936 (Version 1)
Quarter: 2024Q1

REPORT INFORMATION
  Report Type: Spontaneous
  Country: CN (occurrence: None)
  Receive Date: 20240304
  Receipt Date: 20240304
  Transmission Date: 20240409
  Serious: Yes (Other)
  Sender: FDA-Public Use
  Company Number: CN-ROCHE-3516639

PATIENT
  Age: 70 Year
  Sex: Female
  Weight: 60.5 kg

DRUGS (5)
  1. MABTHERA [Suspect]
     Active Substance: RITUXIMAB
     Indication: Anaplastic large-cell lymphoma
     Dosage: D0
     Route: 041
     Dates: start: 20240116
  2. CYCLOPHOSPHAMIDE [Suspect]
     Active Substance: CYCLOPHOSPHAMIDE
     Indication: Anaplastic large-cell lymphoma
     Dosage: D1
     Route: 042
     Dates: start: 20240117
  3. PIRARUBICIN HYDROCHLORIDE [Suspect]
     Active Substance: PIRARUBICIN HYDROCHLORIDE
     Indication: Anaplastic large-cell lymphoma
     Route: 042
     Dates: start: 20240117
  4. VINDESINE SULFATE [Suspect]
     Active Substance: VINDESINE SULFATE
     Indication: Anaplastic large-cell lymphoma
     Route: 042
     Dates: start: 20240117
  5. DEXAMETHASONE SODIUM PHOSPHATE [Concomitant]
     Active Substance: DEXAMETHASONE PHOSPHATE\DEXAMETHASONE SODIUM PHOSPHATE
     Indication: Anaplastic large-cell lymphoma
     Dosage: D1-2
     Route: 042
     Dates: start: 20240117

REACTIONS (2)
  - Agranulocytosis [Recovering/Resolving]
  - Pyrexia [Recovering/Resolving]

NARRATIVE: CASE EVENT DATE: 20240130
